FAERS Safety Report 21605549 (Version 1)
Quarter: 2022Q4

REPORT INFORMATION
  Report Type: Spontaneous
  Country: CN (occurrence: None)
  Receive Date: 20221116
  Receipt Date: 20221116
  Transmission Date: 20230113
  Serious: Yes (Other)
  Sender: FDA-Public Use
  Company Number: 2022A372520

PATIENT
  Age: 70 Year
  Sex: Female
  Weight: 60 kg

DRUGS (5)
  1. OSIMERTINIB MESYLATE [Suspect]
     Active Substance: OSIMERTINIB MESYLATE
     Indication: Chemotherapy
     Route: 048
     Dates: start: 20220520, end: 20220707
  2. ENDOSTATIN [Suspect]
     Active Substance: ENDOSTATIN
     Indication: Chemotherapy
     Route: 041
     Dates: start: 20220610, end: 20220620
  3. CISPLATIN [Suspect]
     Active Substance: CISPLATIN
     Indication: Malignant pleural effusion
     Route: 034
     Dates: start: 20220524
  4. CISPLATIN [Suspect]
     Active Substance: CISPLATIN
     Indication: Malignant pleural effusion
     Route: 034
     Dates: start: 20220601
  5. CISPLATIN [Suspect]
     Active Substance: CISPLATIN
     Indication: Malignant pleural effusion
     Route: 034
     Dates: start: 20220608, end: 20220608

REACTIONS (1)
  - Myelosuppression [Recovering/Resolving]

NARRATIVE: CASE EVENT DATE: 20220707
